FAERS Safety Report 16337721 (Version 1)
Quarter: 2019Q2

REPORT INFORMATION
  Report Type: Spontaneous
  Country: CN (occurrence: CN)
  Receive Date: 20190521
  Receipt Date: 20190521
  Transmission Date: 20190711
  Serious: Yes (Other)
  Sender: FDA-Public Use
  Company Number: CN-BRISTOL-MYERS SQUIBB COMPANY-BMS-2019-045918

PATIENT
  Age: 50 Year
  Sex: Female

DRUGS (1)
  1. GLUCOPHAGE [Suspect]
     Active Substance: METFORMIN HYDROCHLORIDE
     Indication: DIABETES MELLITUS
     Dosage: 1 TAB, BID
     Route: 048
     Dates: start: 20190409

REACTIONS (4)
  - Pruritus [Unknown]
  - Decreased appetite [Recovering/Resolving]
  - Swelling [Unknown]
  - Erythema [Unknown]

NARRATIVE: CASE EVENT DATE: 20190417
